FAERS Safety Report 11981603 (Version 1)
Quarter: 2016Q1

REPORT INFORMATION
  Report Type: Spontaneous
  Country: CH (occurrence: CH)
  Receive Date: 20160131
  Receipt Date: 20160131
  Transmission Date: 20160526
  Serious: Yes (Death, Hospitalization)
  Sender: FDA-Public Use
  Company Number: CH-TEVA-628290ISR

PATIENT
  Age: 64 Year
  Sex: Male
  Weight: 67 kg

DRUGS (9)
  1. VOTUM PLUS [Suspect]
     Active Substance: HYDROCHLOROTHIAZIDE\OLMESARTAN MEDOXOMIL
     Indication: HYPERTENSION
     Route: 048
     Dates: end: 20151209
  2. PANTOZOL [Suspect]
     Active Substance: PANTOPRAZOLE SODIUM
     Indication: PRODUCT USED FOR UNKNOWN INDICATION
     Route: 048
     Dates: end: 20151209
  3. IRFEN-600 LACTAB [Suspect]
     Active Substance: IBUPROFEN
     Indication: PRODUCT USED FOR UNKNOWN INDICATION
     Dosage: STRENGTH 600MG, SUSPECTED AS AGGRAVATING DRUG FOR RENAL INSUFFICIENCY, DIARRHOEA
     Route: 048
     Dates: end: 20151209
  4. SINTROM [Concomitant]
     Active Substance: ACENOCOUMAROL
     Dosage: STRENGTH 1MG
     Route: 048
  5. ERBITUX [Suspect]
     Active Substance: CETUXIMAB
     Indication: SQUAMOUS CELL CARCINOMA OF THE HYPOPHARYNX
     Dosage: 400 MG/M2 DAILY; INFUSION AMPULES VIALS/BOTTLES
     Route: 041
     Dates: start: 20151103, end: 20151103
  6. METOPROLOL. [Suspect]
     Active Substance: METOPROLOL
     Indication: PRODUCT USED FOR UNKNOWN INDICATION
     Dosage: 100 MILLIGRAM DAILY; UNSPECIFIED STRENGTH
     Route: 048
  7. ERBITUX [Suspect]
     Active Substance: CETUXIMAB
     Dosage: INFUSION AMPULES VIALS/BOTTLES
     Route: 041
     Dates: start: 20151110, end: 20151209
  8. ZANIDIP [Suspect]
     Active Substance: LERCANIDIPINE HYDROCHLORIDE
     Indication: HYPERTENSION
     Dosage: 20 MILLIGRAM DAILY; UNSPECIFIED STRENGTH
     Route: 048
  9. ELTROXIN [Concomitant]
     Active Substance: LEVOTHYROXINE
     Indication: HYPOTHYROIDISM
     Dosage: 50 MICROGRAM DAILY; STRENGTH 50MCG
     Route: 048

REACTIONS (10)
  - Hypovolaemic shock [Not Recovered/Not Resolved]
  - Staphylococcal infection [Fatal]
  - Clostridium difficile colitis [Fatal]
  - Dehydration [Not Recovered/Not Resolved]
  - Acute kidney injury [Fatal]
  - Sepsis [Fatal]
  - Death [Fatal]
  - Melaena [Unknown]
  - Respiratory disorder [None]
  - Aspiration [None]

NARRATIVE: CASE EVENT DATE: 201512
